FAERS Safety Report 4757419-9 (Version None)
Quarter: 2005Q3

REPORT INFORMATION
  Report Type: 
  Country: None (occurrence: None)
  Receive Date: 20050831
  Receipt Date: 20050822
  Transmission Date: 20060218
  Serious: Yes (Hospitalization, Other)
  Sender: FDA-Public Use
  Company Number: 200517416GDDC

PATIENT
  Age: 58 Year
  Sex: Female
  Weight: 96.39 kg

DRUGS (4)
  1. TAXOTERE [Suspect]
     Indication: BREAST CANCER
     Route: 042
     Dates: start: 20050222, end: 20050720
  2. NORVASC [Concomitant]
     Indication: HYPERTENSION
     Dates: start: 20050127
  3. CLONIDINE [Concomitant]
     Indication: HYPERTENSION
     Dosage: DOSE: 0.1MG/2 DAILY
     Dates: start: 20050127
  4. ULTRACET [Concomitant]
     Indication: ARTHRALGIA
     Dosage: DOSE: 37.5/325 MG EVERY 6 HOURS
     Dates: start: 20050609

REACTIONS (4)
  - ANKLE FRACTURE [None]
  - FALL [None]
  - IMPAIRED HEALING [None]
  - NEUROPATHY [None]
